FAERS Safety Report 8926654 (Version 1)
Quarter: 2012Q4

REPORT INFORMATION
  Report Type: 
  Country: US (occurrence: US)
  Receive Date: 20121127
  Receipt Date: 20121127
  Transmission Date: 20130627
  Serious: No
  Sender: FDA-Public Use
  Company Number: US-PFIZER INC-2012293055

PATIENT
  Age: 22 Year
  Sex: Female

DRUGS (4)
  1. REVATIO [Suspect]
     Dosage: UNK
  2. LETAIRIS [Suspect]
     Indication: PRIMARY PULMONARY HYPERTENSION
     Dosage: 10 mg, 1x/day (QD)
     Route: 048
     Dates: start: 20120413
  3. REMODULIN [Concomitant]
     Dosage: UNK
  4. ADCIRCA [Concomitant]
     Dosage: UNK

REACTIONS (3)
  - Diarrhoea [Recovered/Resolved]
  - Vomiting [Recovered/Resolved]
  - Nausea [Recovered/Resolved]
